FAERS Safety Report 18534271 (Version 1)
Quarter: 2020Q4

REPORT INFORMATION
  Report Type: Spontaneous
  Country: US (occurrence: US)
  Receive Date: 20201123
  Receipt Date: 20201123
  Transmission Date: 20210114
  Serious: Yes (Life-Threatening)
  Sender: FDA-Public Use
  Company Number: None

PATIENT
  Age: 26 Year
  Sex: Male
  Weight: 95.4 kg

DRUGS (2)
  1. AMPHOTERICIN B LIPOSOME FOR INJECTION [Suspect]
     Active Substance: AMPHOTERICIN B
     Indication: PNEUMONIA FUNGAL
     Route: 042
     Dates: start: 20201120, end: 20201120
  2. AMPHOTERICIN B LIPOSOME FOR INJECTION [Suspect]
     Active Substance: AMPHOTERICIN B
     Indication: PNEUMONIA FUNGAL
     Route: 042
     Dates: start: 20201120, end: 20201120

REACTIONS (10)
  - Drug hypersensitivity [None]
  - Unresponsive to stimuli [None]
  - Apnoea [None]
  - Urinary incontinence [None]
  - Dyspnoea [None]
  - Hyperhidrosis [None]
  - Seizure like phenomena [None]
  - Heart rate increased [None]
  - Infusion related reaction [None]
  - Body temperature increased [None]

NARRATIVE: CASE EVENT DATE: 20201120
